FAERS Safety Report 18693919 (Version 1)
Quarter: 2021Q1

REPORT INFORMATION
  Report Type: Spontaneous
  Country: US (occurrence: US)
  Receive Date: 20210102
  Receipt Date: 20210102
  Transmission Date: 20210419
  Serious: Yes (Other)
  Sender: FDA-Public Use
  Company Number: None

PATIENT
  Age: 76 Year
  Sex: Male
  Weight: 92.2 kg

DRUGS (9)
  1. REMDESIVIR. [Suspect]
     Active Substance: REMDESIVIR
     Indication: HYPOXIA
     Dates: start: 20201206, end: 20201207
  2. DOCUSATE 100 MG CAPSULE [Concomitant]
     Active Substance: DOCUSATE SODIUM
     Dates: start: 20201205, end: 20201212
  3. AZITHROMYCIN ANHYDROUS. [Concomitant]
     Active Substance: AZITHROMYCIN ANHYDROUS
     Dates: start: 20201205, end: 20201205
  4. DEXAMETHASONE. [Concomitant]
     Active Substance: DEXAMETHASONE
     Dates: start: 20201206, end: 20201211
  5. REMDESIVIR. [Suspect]
     Active Substance: REMDESIVIR
     Indication: COVID-19 PNEUMONIA
     Dates: start: 20201206, end: 20201207
  6. INSULIN LISPRO [Concomitant]
     Active Substance: INSULIN LISPRO
     Dates: start: 20201206, end: 20201212
  7. ENOXAPARIN [Concomitant]
     Active Substance: ENOXAPARIN
     Dates: start: 20201206, end: 20201212
  8. ONDANSETRON [Concomitant]
     Active Substance: ONDANSETRON
     Dates: start: 20201205, end: 20201212
  9. CEFTRIAXONE IV [Concomitant]
     Dates: start: 20201206, end: 20201208

REACTIONS (6)
  - Hypotension [None]
  - Chills [None]
  - Vomiting [None]
  - Sinus arrest [None]
  - Dizziness [None]
  - Cough [None]

NARRATIVE: CASE EVENT DATE: 20201206
